FAERS Safety Report 7989683-7 (Version None)
Quarter: 2011Q4

REPORT INFORMATION
  Report Type: 
  Country: None (occurrence: None)
  Receive Date: 20111219
  Receipt Date: 20111205
  Transmission Date: 20120403
  Serious: Yes (Death, Hospitalization)
  Sender: FDA-Public Use
  Company Number: AT-NAPPMUNDI-DEU-2011-0008160

PATIENT
  Age: 75 Year
  Sex: Female

DRUGS (3)
  1. THEOPHYLLINE [Suspect]
     Indication: PRODUCT USED FOR UNKNOWN INDICATION
     Dosage: 450 MG, DAILY
     Route: 048
  2. MOXIFLOXACIN [Suspect]
     Indication: PRODUCT USED FOR UNKNOWN INDICATION
     Dosage: 400 MG, DAILY
     Route: 048
  3. THEOPHYLLINE [Suspect]
     Dosage: 300 MG, DAILY
     Route: 048

REACTIONS (5)
  - ACCIDENTAL OVERDOSE [None]
  - PULMONARY OEDEMA [None]
  - DRUG INTERACTION [None]
  - RENAL FAILURE ACUTE [None]
  - SUPRAVENTRICULAR TACHYCARDIA [None]
